FAERS Safety Report 11664898 (Version 1)
Quarter: 2015Q4

REPORT INFORMATION
  Report Type: Spontaneous
  Country: US (occurrence: None)
  Receive Date: 20151026
  Receipt Date: 20151026
  Transmission Date: 20160304
  Serious: Yes (Life-Threatening, Hospitalization)
  Sender: FDA-Public Use
  Company Number: None

PATIENT
  Age: 63 Year
  Sex: Male
  Weight: 55.6 kg

DRUGS (1)
  1. AMLODIPINE [Suspect]
     Active Substance: AMLODIPINE BESYLATE
     Indication: HYPERTENSION
     Route: 048
     Dates: start: 20120321, end: 20131223

REACTIONS (8)
  - Chills [None]
  - Dyspnoea [None]
  - Stridor [None]
  - Somnolence [None]
  - Tachycardia [None]
  - Confusional state [None]
  - Angioedema [None]
  - Pyrexia [None]

NARRATIVE: CASE EVENT DATE: 20131222
